FAERS Safety Report 19668457 (Version 1)
Quarter: 2021Q3

REPORT INFORMATION
  Report Type: Spontaneous
  Country: US (occurrence: US)
  Receive Date: 20210806
  Receipt Date: 20210806
  Transmission Date: 20211014
  Serious: Yes (Other)
  Sender: FDA-Public Use
  Company Number: US-JNJFOC-20210801216

PATIENT
  Sex: Female

DRUGS (1)
  1. XARELTO [Suspect]
     Active Substance: RIVAROXABAN
     Indication: THROMBOSIS
     Route: 048
     Dates: start: 20210419

REACTIONS (4)
  - Nephrolithiasis [Unknown]
  - Haemorrhage [Unknown]
  - Blood urine present [Recovered/Resolved with Sequelae]
  - Urinary tract infection [Unknown]

NARRATIVE: CASE EVENT DATE: 202105
